FAERS Safety Report 8298141-4 (Version None)
Quarter: 2012Q2

REPORT INFORMATION
  Report Type: 
  Country: None (occurrence: None)
  Receive Date: 20120419
  Receipt Date: 20120402
  Transmission Date: 20120825
  Serious: Yes (Other)
  Sender: FDA-Public Use
  Company Number: IT-ROCHE-1055332

PATIENT

DRUGS (7)
  1. CETUXIMAB [Suspect]
     Indication: METASTASES TO LARGE INTESTINE
  2. FLUOROURACIL [Suspect]
     Indication: METASTASES TO LARGE INTESTINE
  3. OXALIPLATIN [Suspect]
     Indication: METASTASES TO LARGE INTESTINE
  4. XELODA [Suspect]
     Indication: METASTASES TO LARGE INTESTINE
  5. LEUCOVORIN CALCIUM [Suspect]
     Indication: METASTASES TO LARGE INTESTINE
  6. IRINOTECAN HYDROCHLORIDE [Suspect]
     Indication: METASTASES TO LARGE INTESTINE
  7. AVASTIN [Suspect]
     Indication: METASTASES TO LARGE INTESTINE

REACTIONS (7)
  - SEPSIS [None]
  - PULMONARY EMBOLISM [None]
  - SMALL INTESTINAL PERFORATION [None]
  - POST PROCEDURAL HAEMORRHAGE [None]
  - GASTROINTESTINAL DISORDER [None]
  - HEPATIC FAILURE [None]
  - RENAL FAILURE [None]
